FAERS Safety Report 6895507-1 (Version None)
Quarter: 2010Q3

REPORT INFORMATION
  Report Type: 
  Country: None (occurrence: None)
  Receive Date: 20100728
  Receipt Date: 20100716
  Transmission Date: 20110219
  Serious: Yes (Hospitalization, Other)
  Sender: FDA-Public Use
  Company Number: 2010SP039683

PATIENT
  Age: 39 Year
  Sex: Male

DRUGS (1)
  1. PEG-INTRON [Suspect]
     Indication: HEPATITIS B
     Dates: start: 20100423

REACTIONS (4)
  - BACK PAIN [None]
  - FATIGUE [None]
  - PULMONARY EMBOLISM [None]
  - PYREXIA [None]
